FAERS Safety Report 8597474 (Version 5)
Quarter: 2014Q3

REPORT INFORMATION
  Report Type: Spontaneous
  Country: US (occurrence: US)
  Receive Date: 20120605
  Receipt Date: 20140807
  Transmission Date: 20150326
  Serious: Yes (Hospitalization, Other)
  Sender: FDA-Public Use
  Company Number: US-ASTRAZENECA-2012SE35864

PATIENT
  Age: 51 Year
  Sex: Female
  Weight: 83.5 kg

DRUGS (28)
  1. ACIPHEX [Concomitant]
     Active Substance: RABEPRAZOLE SODIUM
     Dates: start: 20020308
  2. HYZAAR [Concomitant]
     Active Substance: HYDROCHLOROTHIAZIDE\LOSARTAN POTASSIUM
     Dosage: 50-12.5
     Dates: start: 20020522
  3. DIOVAN [Concomitant]
     Active Substance: VALSARTAN
     Dates: start: 20120202
  4. NEXIUM [Suspect]
     Active Substance: ESOMEPRAZOLE MAGNESIUM
     Indication: GASTROOESOPHAGEAL REFLUX DISEASE
     Route: 048
     Dates: start: 2008, end: 2013
  5. ATENOLOL. [Concomitant]
     Active Substance: ATENOLOL
     Dates: start: 20020301
  6. NORVASC [Concomitant]
     Active Substance: AMLODIPINE BESYLATE
     Dates: start: 20020301
  7. BIAXIN [Concomitant]
     Active Substance: CLARITHROMYCIN
     Dates: start: 20020801
  8. CLONIDINE. [Concomitant]
     Active Substance: CLONIDINE
     Dates: start: 20120228
  9. MOBIC [Concomitant]
     Active Substance: MELOXICAM
     Dates: start: 20020214
  10. POTASSIUM CL [Concomitant]
     Active Substance: POTASSIUM CHLORIDE
     Dates: start: 20020308
  11. CLARITIN [Concomitant]
     Active Substance: LORATADINE
     Dates: start: 20020801
  12. PREMARIN [Concomitant]
     Active Substance: ESTROGENS, CONJUGATED
     Dates: start: 20020403
  13. CIPRO [Concomitant]
     Active Substance: CIPROFLOXACIN HYDROCHLORIDE
     Dates: start: 20020301
  14. UNIPHYL [Concomitant]
     Active Substance: THEOPHYLLINE ANHYDROUS
     Dates: start: 20020307
  15. NEURONTIN [Concomitant]
     Active Substance: GABAPENTIN
     Dates: start: 20020506
  16. METFORMIN [Concomitant]
     Active Substance: METFORMIN HYDROCHLORIDE
     Indication: BLOOD GLUCOSE ABNORMAL
     Dates: start: 20090905
  17. HYDROCODON [Concomitant]
     Active Substance: HYDROCODONE
     Indication: BACK PAIN
  18. VITAMIN B1 [Concomitant]
     Active Substance: THIAMINE HYDROCHLORIDE
     Indication: NUTRITIONAL SUPPLEMENTATION
  19. NEXIUM [Suspect]
     Active Substance: ESOMEPRAZOLE MAGNESIUM
     Indication: GASTROOESOPHAGEAL REFLUX DISEASE
     Route: 048
     Dates: start: 20020506
  20. NEXIUM [Suspect]
     Active Substance: ESOMEPRAZOLE MAGNESIUM
     Indication: GASTROOESOPHAGEAL REFLUX DISEASE
     Dosage: TAKE AS NEEDED
     Route: 048
     Dates: start: 20130522
  21. PREDNISONE. [Concomitant]
     Active Substance: PREDNISONE
     Dates: start: 20110418
  22. PREDNISONE. [Concomitant]
     Active Substance: PREDNISONE
     Dates: start: 20020214
  23. PREMARIN [Concomitant]
     Active Substance: ESTROGENS, CONJUGATED
     Dates: start: 20091002
  24. AUGMENTIN [Concomitant]
     Active Substance: AMOXICILLIN\CLAVULANATE POTASSIUM
     Dosage: 875-125
     Dates: start: 20020214
  25. FUROSEMIDE. [Concomitant]
     Active Substance: FUROSEMIDE
     Indication: BLOOD PRESSURE ABNORMAL
     Dates: start: 20090905
  26. CETIRIZINE [Concomitant]
     Active Substance: CETIRIZINE HYDROCHLORIDE
     Indication: BLOOD PRESSURE ABNORMAL
     Dates: start: 20120228
  27. LABETALOL [Concomitant]
     Active Substance: LABETALOL\LABETALOL HYDROCHLORIDE
     Route: 048
     Dates: start: 20120606
  28. DIPHENOXYLATE/ATROPINE [Concomitant]
     Active Substance: ATROPINE\DIPHENOXYLATE
     Dates: start: 20020308

REACTIONS (11)
  - Pain [Unknown]
  - Lower limb fracture [Unknown]
  - Type 2 diabetes mellitus [Unknown]
  - Fall [Unknown]
  - Upper limb fracture [Unknown]
  - Facial bones fracture [Unknown]
  - Malaise [Unknown]
  - Osteoporosis [Unknown]
  - Ankle fracture [Unknown]
  - Osteopenia [Unknown]
  - Arthritis [Unknown]

NARRATIVE: CASE EVENT DATE: 2004
